FAERS Safety Report 22255570 (Version 1)
Quarter: 2023Q2

REPORT INFORMATION
  Report Type: Spontaneous
  Country: RO (occurrence: RO)
  Receive Date: 20230426
  Receipt Date: 20230426
  Transmission Date: 20230722
  Serious: Yes (Other)
  Sender: FDA-Public Use
  Company Number: RO-AMGEN-ROUSP2023059294

PATIENT
  Age: 66 Year
  Sex: Female

DRUGS (7)
  1. LEUCOVORIN [Suspect]
     Active Substance: LEUCOVORIN
     Indication: Colorectal cancer metastatic
     Dosage: UNK UNK, Q2WK
     Route: 042
     Dates: start: 202107, end: 202204
  2. FLUOROURACIL [Suspect]
     Active Substance: FLUOROURACIL
     Indication: Colorectal cancer metastatic
     Dosage: UNK UNK, Q2WK
     Route: 042
     Dates: start: 202107, end: 202204
  3. VECTIBIX [Suspect]
     Active Substance: PANITUMUMAB
     Indication: Colorectal cancer metastatic
     Dosage: UNK UNK, Q2WK (80 PERCENT (DOSE REDUCED DUE TO SKIN TOXICITY))SOLUTION FOR INJECTION
     Route: 042
     Dates: start: 202204, end: 202208
  4. VECTIBIX [Suspect]
     Active Substance: PANITUMUMAB
     Dosage: UNK UNK, Q2WK?SOLUTION FOR INJECTION
     Route: 042
     Dates: start: 202107, end: 202204
  5. VECTIBIX [Suspect]
     Active Substance: PANITUMUMAB
     Dosage: UNK UNK, Q2WK (60 PERCENT DOSE REDUCED DUE TO SKIN TOXICITY))?SOLUTION FOR INJECTION
     Route: 042
     Dates: start: 202210, end: 202211
  6. VECTIBIX [Suspect]
     Active Substance: PANITUMUMAB
     Dosage: UNK UNK, Q2WK (75 PERCENT (DOSE REDUCED DUE TO SKIN TOXICITY))?SOLUTION FOR INJECTION
     Route: 042
     Dates: start: 202208, end: 202210
  7. ZOLEDRONIC ACID [Concomitant]
     Active Substance: ZOLEDRONIC ACID
     Indication: Product used for unknown indication
     Dosage: UNK

REACTIONS (3)
  - Skin lesion [None]
  - Rash pustular [None]
  - Rash [Recovered/Resolved]

NARRATIVE: CASE EVENT DATE: 20220401
